FAERS Safety Report 7382499-4 (Version None)
Quarter: 2011Q1

REPORT INFORMATION
  Report Type: 
  Country: None (occurrence: None)
  Receive Date: 20110329
  Receipt Date: 20110302
  Transmission Date: 20110831
  Serious: Yes (Hospitalization, Other)
  Sender: FDA-Public Use
  Company Number: US-BAYER-201039669NA

PATIENT
  Sex: Female
  Weight: 80.272 kg

DRUGS (5)
  1. VICODIN [Concomitant]
     Dosage: DAILY DOSE 500 MG
  2. GLUCOPHAGE [Concomitant]
     Indication: POLYCYSTIC OVARIES
  3. PROZAC [Concomitant]
     Indication: OBSESSIVE-COMPULSIVE DISORDER
     Dosage: DAILY DOSE 40 MG
  4. YAZ [Suspect]
     Indication: POLYCYSTIC OVARIES
     Dosage: UNK UNK, QD
     Route: 048
     Dates: start: 20080324
  5. WELLBUTRIN [Concomitant]
     Dosage: DAILY DOSE 150 MG

REACTIONS (3)
  - CHOLELITHIASIS [None]
  - PAIN [None]
  - CHOLECYSTITIS [None]
